FAERS Safety Report 11654740 (Version 9)
Quarter: 2017Q3

REPORT INFORMATION
  Report Type: Spontaneous
  Country: US (occurrence: US)
  Receive Date: 20151023
  Receipt Date: 20170726
  Transmission Date: 20171127
  Serious: Yes (Hospitalization, Other)
  Sender: FDA-Public Use
  Company Number: US-PFIZER INC-2015358245

PATIENT
  Age: 75 Year
  Sex: Female
  Weight: 55 kg

DRUGS (4)
  1. PREMARIN [Suspect]
     Active Substance: ESTROGENS, CONJUGATED
     Indication: HORMONE REPLACEMENT THERAPY
     Dosage: 20 MG, 1X/DAY
     Dates: start: 201509, end: 2015
  2. MORPHINE SULFATE. [Concomitant]
     Active Substance: MORPHINE SULFATE
     Indication: BACK DISORDER
     Dosage: UNK
  3. HYDROCODONE [Concomitant]
     Active Substance: HYDROCODONE
     Indication: BACK DISORDER
     Dosage: UNK
  4. NAPROXEN. [Concomitant]
     Active Substance: NAPROXEN
     Indication: BACK DISORDER
     Dosage: UNK

REACTIONS (13)
  - Hip fracture [Unknown]
  - Multiple fractures [Unknown]
  - Irritability [Recovered/Resolved]
  - Headache [Unknown]
  - Hormone level abnormal [Unknown]
  - Product quality issue [Recovered/Resolved]
  - Road traffic accident [Unknown]
  - Drug ineffective [Unknown]
  - Feeling abnormal [Unknown]
  - Agitation [Unknown]
  - Pruritus [Recovered/Resolved]
  - Rash [Recovered/Resolved]
  - Flatulence [Unknown]

NARRATIVE: CASE EVENT DATE: 2015
